FAERS Safety Report 7249960-4 (Version None)
Quarter: 2011Q1

REPORT INFORMATION
  Report Type: 
  Country: None (occurrence: None)
  Receive Date: 20110128
  Receipt Date: 20101104
  Transmission Date: 20110831
  Serious: No
  Sender: FDA-Public Use
  Company Number: A0890892A

PATIENT
  Age: 57 Year
  Sex: Female

DRUGS (4)
  1. WELLBUTRIN SR [Suspect]
     Dosage: 150MG IN THE MORNING
     Route: 048
     Dates: start: 20101031
  2. THYROID MEDICATION [Concomitant]
  3. WELLBUTRIN [Suspect]
     Indication: DEPRESSION
     Dosage: 1TAB TWICE PER DAY
     Route: 048
  4. HORMONES [Concomitant]
     Route: 061

REACTIONS (6)
  - ANXIETY [None]
  - DRUG INEFFECTIVE [None]
  - RESTLESS LEGS SYNDROME [None]
  - DYSKINESIA [None]
  - TINNITUS [None]
  - CRYING [None]
